FAERS Safety Report 7162880-9 (Version None)
Quarter: 2010Q4

REPORT INFORMATION
  Report Type: 
  Country: None (occurrence: None)
  Receive Date: 20101215
  Receipt Date: 20100107
  Transmission Date: 20110411
  Serious: Yes (Other)
  Sender: FDA-Public Use
  Company Number: US-PFIZER INC-2010003046

PATIENT
  Sex: Male

DRUGS (5)
  1. LYRICA [Suspect]
     Dosage: UNK
     Dates: start: 20080601
  2. ALPRAZOLAM [Suspect]
     Dosage: UNK
  3. CARDURA [Suspect]
     Dosage: UNK
  4. CLONAZEPAM [Suspect]
     Dosage: UNK
  5. MELOXICAM [Suspect]
     Dosage: UNK

REACTIONS (8)
  - AMNESIA [None]
  - BLADDER DILATATION [None]
  - DRUG INEFFECTIVE [None]
  - DYSURIA [None]
  - FATIGUE [None]
  - GASTRIC DISORDER [None]
  - PROSTATIC DISORDER [None]
  - SCOLIOSIS [None]
